FAERS Safety Report 4622179-9 (Version None)
Quarter: 2005Q1

REPORT INFORMATION
  Report Type: 
  Country: None (occurrence: None)
  Receive Date: 20050329
  Receipt Date: 20050316
  Transmission Date: 20050727
  Serious: Yes (Hospitalization)
  Sender: FDA-Public Use
  Company Number: 2005UW04211

PATIENT
  Sex: Male

DRUGS (2)
  1. CRESTOR [Suspect]
     Dosage: 10 MG QD PO
     Route: 048
     Dates: start: 20040601, end: 20050201
  2. LIPITOR [Concomitant]

REACTIONS (3)
  - PULMONARY OEDEMA [None]
  - RENAL FAILURE ACUTE [None]
  - RHABDOMYOLYSIS [None]
